FAERS Safety Report 4627395-8 (Version None)
Quarter: 2005Q1

REPORT INFORMATION
  Report Type: 
  Country: None (occurrence: None)
  Receive Date: 20050330
  Receipt Date: 20040830
  Transmission Date: 20050727
  Serious: Yes (Hospitalization)
  Sender: FDA-Public Use
  Company Number: A03200403008

PATIENT
  Age: 36 Year
  Sex: Female

DRUGS (9)
  1. AMBIEN [Suspect]
     Dosage: 20 MG HS- ORAL
     Route: 048
     Dates: start: 20031021, end: 20031229
  2. EFFEXOR XR [Suspect]
     Dosage: 450 MG QD- ORAL
     Route: 048
     Dates: start: 20031113
  3. MIRTAZAPINE [Concomitant]
  4. ................ [Concomitant]
  5. ARIPIPRAZOLE [Concomitant]
  6. TIAGABINE HYDROCHLORIDE [Concomitant]
  7. CLONAZEPAM [Concomitant]
  8. TIAGABINE HYDROCHLORIDE [Concomitant]
  9. LORAZEPAM [Concomitant]

REACTIONS (4)
  - CAESAREAN SECTION [None]
  - COMPLICATIONS OF MATERNAL EXPOSURE TO THERAPEUTIC DRUGS [None]
  - PREGNANCY [None]
  - PREMATURE LABOUR [None]
